FAERS Safety Report 8021604-3 (Version None)
Quarter: 2012Q1

REPORT INFORMATION
  Report Type: 
  Country: None (occurrence: None)
  Receive Date: 20120104
  Receipt Date: 20120104
  Transmission Date: 20120608
  Serious: No
  Sender: FDA-Public Use
  Company Number: None

PATIENT
  Age: 70 Year
  Sex: Female
  Weight: 123.37 kg

DRUGS (1)
  1. LITHIUM CITRATE [Suspect]
     Indication: BIPOLAR DISORDER
     Dosage: UNKNOWN
     Dates: start: 20081216, end: 20111025

REACTIONS (1)
  - NEPHROGENIC DIABETES INSIPIDUS [None]
